FAERS Safety Report 4690214-8 (Version None)
Quarter: 2005Q2

REPORT INFORMATION
  Report Type: 
  Country: None (occurrence: None)
  Receive Date: 20050613
  Receipt Date: 20050602
  Transmission Date: 20051028
  Serious: Yes (Hospitalization)
  Sender: FDA-Public Use
  Company Number: 2005AD000047

PATIENT
  Age: 62 Year
  Sex: Female

DRUGS (3)
  1. KEFLEX [Suspect]
     Dates: start: 20050310
  2. LAMICTAL [Suspect]
     Indication: BIPOLAR DISORDER
     Dosage: 100 MG; QD; PO
     Route: 048
     Dates: start: 20050101, end: 20050101
  3. SULFACETAMIDE SODIUM [Suspect]
     Dates: start: 20050310

REACTIONS (7)
  - BLOOD CREATININE INCREASED [None]
  - DYSPHAGIA [None]
  - DYSPNOEA [None]
  - LIP ULCERATION [None]
  - RESPIRATORY DISTRESS [None]
  - STEVENS-JOHNSON SYNDROME [None]
  - SWELLING FACE [None]
